FAERS Safety Report 7280051-2 (Version None)
Quarter: 2011Q1

REPORT INFORMATION
  Report Type: 
  Country: None (occurrence: None)
  Receive Date: 20110203
  Receipt Date: 20110203
  Transmission Date: 20110831
  Serious: Yes (Hospitalization)
  Sender: FDA-Public Use
  Company Number: None

PATIENT
  Sex: Female
  Weight: 79.8331 kg

DRUGS (11)
  1. CARBOPLATIN [Suspect]
     Indication: NON-SMALL CELL LUNG CANCER
     Dosage: D1 Q 21 DAYS PT DID NOT START YET
  2. COLACE [Concomitant]
  3. SENNA [Concomitant]
  4. CMPAZINE [Concomitant]
  5. LEVOFLOXACIN [Concomitant]
  6. ROBITUSSION [Concomitant]
  7. ZOFRAN [Concomitant]
  8. AVASTIN [Suspect]
     Indication: NON-SMALL CELL LUNG CANCER
     Dosage: 15 MG D-14 + D1 Q21 D
     Dates: start: 20101220, end: 20101220
  9. ABRAXANE [Suspect]
     Indication: NON-SMALL CELL LUNG CANCER
     Dosage: 100 MG D1, 8 + 15  (PT. HAS NOT STARTED ABRA
  10. TESSALON [Concomitant]
  11. ALBUTEROL SULFATE AUTOHALER [Concomitant]

REACTIONS (1)
  - PLEURAL EFFUSION [None]
